FAERS Safety Report 8872064 (Version 2)
Quarter: 2013Q1

REPORT INFORMATION
  Report Type: Spontaneous
  Country: US (occurrence: None)
  Receive Date: 20121024
  Receipt Date: 20121129
  Transmission Date: 20140127
  Serious: Yes (Other)
  Sender: FDA-Public Use
  Company Number: 2012SA075155

PATIENT
  Age: 64 Year
  Sex: Female
  Weight: 86.6 kg

DRUGS (2)
  1. ICY HOT [Suspect]
     Indication: ARTHRALGIA
     Dates: start: 2012, end: 2012
  2. ICY HOT MEDICATED SPRAY [Suspect]
     Indication: ARTHRALGIA

REACTIONS (2)
  - Chemical injury [None]
  - Blister [None]
